FAERS Safety Report 20023202 (Version 1)
Quarter: 2021Q4

REPORT INFORMATION
  Report Type: Spontaneous
  Country: KR (occurrence: KR)
  Receive Date: 20211102
  Receipt Date: 20211102
  Transmission Date: 20220303
  Serious: Yes (Hospitalization, Other)
  Sender: FDA-Public Use
  Company Number: KR-KYOWAKIRIN-2021AKK018021

PATIENT
  Age: 70 Year
  Sex: Male

DRUGS (45)
  1. FILGRASTIM [Suspect]
     Active Substance: FILGRASTIM
     Indication: Product used for unknown indication
     Dosage: 300 UG, QD
     Route: 042
     Dates: start: 20161121, end: 20161121
  2. FILGRASTIM [Suspect]
     Active Substance: FILGRASTIM
     Dosage: 150 MICROGRAM, QD
     Route: 058
     Dates: start: 20161118, end: 20161118
  3. FILGRASTIM [Suspect]
     Active Substance: FILGRASTIM
     Dosage: 150 MICROGRAM, QD
     Route: 042
     Dates: start: 20161228, end: 20161228
  4. APREPITANT [Suspect]
     Active Substance: APREPITANT
     Indication: Product used for unknown indication
     Dosage: 150 MG, QD
     Route: 042
     Dates: start: 20161110, end: 20161110
  5. APREPITANT [Suspect]
     Active Substance: APREPITANT
     Dosage: 150 MG, QD
     Route: 042
     Dates: start: 20161208, end: 20161208
  6. APREPITANT [Suspect]
     Active Substance: APREPITANT
     Dosage: 150 MG, QD
     Route: 042
     Dates: start: 20161229, end: 20161229
  7. CIMETROPIUM BROMIDE [Concomitant]
     Active Substance: CIMETROPIUM BROMIDE
     Indication: Product used for unknown indication
     Dosage: 5 MG, QD
     Route: 030
     Dates: start: 20161117, end: 20161117
  8. CISPLATIN [Concomitant]
     Active Substance: CISPLATIN
     Indication: Product used for unknown indication
     Dosage: 100 MG, QD
     Route: 042
     Dates: start: 20161229, end: 20161229
  9. CISPLATIN [Concomitant]
     Active Substance: CISPLATIN
     Dosage: 107 MG, QD
     Route: 042
     Dates: start: 20161208, end: 20161208
  10. CISPLATIN [Concomitant]
     Active Substance: CISPLATIN
     Dosage: 108 MG, QD
     Route: 042
     Dates: start: 20161110, end: 20161110
  11. DEXAMETHASONE [Concomitant]
     Active Substance: DEXAMETHASONE
     Indication: Product used for unknown indication
     Dosage: 4 MG, QD
     Route: 048
     Dates: start: 20161111, end: 20161113
  12. DEXAMETHASONE [Concomitant]
     Active Substance: DEXAMETHASONE
     Dosage: 4 MG, QD
     Route: 048
     Dates: start: 20161209, end: 20161211
  13. DEXAMETHASONE [Concomitant]
     Active Substance: DEXAMETHASONE
     Dosage: 4 MG, QD
     Route: 048
     Dates: start: 20161230, end: 20170101
  14. DEXAMETHASONE [Concomitant]
     Active Substance: DEXAMETHASONE
     Dosage: 12 MG, QD
     Route: 048
     Dates: start: 20161110, end: 20161110
  15. DEXAMETHASONE [Concomitant]
     Active Substance: DEXAMETHASONE
     Dosage: 12 MG, QD
     Route: 048
     Dates: start: 20161208, end: 20161208
  16. DEXAMETHASONE [Concomitant]
     Active Substance: DEXAMETHASONE
     Dosage: 12 MG, QD
     Route: 048
     Dates: start: 20161229, end: 20161229
  17. FAMOTIDINE [Concomitant]
     Active Substance: FAMOTIDINE
     Indication: Product used for unknown indication
     Dosage: 20 MG, QD
     Route: 042
     Dates: start: 20161118, end: 20161121
  18. FENTANYL [Concomitant]
     Active Substance: FENTANYL
     Indication: Product used for unknown indication
     Dosage: 12 UG, QD
     Route: 065
     Dates: start: 20161118, end: 20170116
  19. FUROSEMIDE [Concomitant]
     Active Substance: FUROSEMIDE
     Indication: Product used for unknown indication
     Dosage: 20 MG, QD
     Route: 030
     Dates: start: 20161110, end: 20161110
  20. FUROSEMIDE [Concomitant]
     Active Substance: FUROSEMIDE
     Dosage: 20 MG, QD
     Route: 030
     Dates: start: 20161208, end: 20161208
  21. FUROSEMIDE [Concomitant]
     Active Substance: FUROSEMIDE
     Dosage: 20 MG, QD
     Route: 030
     Dates: start: 20161229, end: 20161229
  22. GEMIGLIPTIN [Concomitant]
     Active Substance: GEMIGLIPTIN
     Indication: Product used for unknown indication
     Dosage: 50 MG, QD
     Route: 048
     Dates: start: 20161114, end: 20170117
  23. IRINOTECAN [Concomitant]
     Active Substance: IRINOTECAN
     Indication: Product used for unknown indication
     Dosage: 100 MG, QD
     Route: 065
     Dates: start: 20161208, end: 20161208
  24. IRINOTECAN [Concomitant]
     Active Substance: IRINOTECAN
     Dosage: 107 MG, QD
     Route: 065
     Dates: start: 20161229, end: 20161229
  25. IRINOTECAN [Concomitant]
     Active Substance: IRINOTECAN
     Dosage: 126 MG, QD
     Route: 065
     Dates: start: 20161110, end: 20161110
  26. LOPERAMIDE [Concomitant]
     Active Substance: LOPERAMIDE
     Indication: Product used for unknown indication
     Dosage: 2 MG, QD
     Route: 048
     Dates: start: 20170102, end: 20170117
  27. LOPERAMIDE [Concomitant]
     Active Substance: LOPERAMIDE
     Dosage: 4 MG, QD
     Route: 048
     Dates: start: 20161118, end: 20161125
  28. LOPERAMIDE [Concomitant]
     Active Substance: LOPERAMIDE
     Dosage: 4 MG, QD
     Route: 048
     Dates: start: 20161211, end: 20161221
  29. METFORMIN [Concomitant]
     Active Substance: METFORMIN HYDROCHLORIDE
     Indication: Product used for unknown indication
     Dosage: 250 MG, QD
     Route: 048
     Dates: start: 201609, end: 20161113
  30. METOCLOPRAMIDE [Concomitant]
     Active Substance: METOCLOPRAMIDE
     Indication: Product used for unknown indication
     Dosage: 5 MG, QD
     Route: 048
     Dates: start: 20161212, end: 20161216
  31. OXYCODONE [Concomitant]
     Active Substance: OXYCODONE
     Indication: Product used for unknown indication
     Dosage: 20 MG, QD
     Route: 048
     Dates: start: 20161228, end: 20170102
  32. POLYSTYRENE SULFONATE CA [Concomitant]
     Indication: Product used for unknown indication
     Dosage: 20 ML, QD
     Route: 048
     Dates: start: 20161114, end: 20161125
  33. POLYSTYRENE SULFONATE CA [Concomitant]
     Dosage: 20 ML, QD
     Route: 048
     Dates: start: 20161207, end: 20161218
  34. POLYSTYRENE SULFONATE CA [Concomitant]
     Dosage: 20 ML, QD
     Route: 048
     Dates: start: 20161228, end: 20161230
  35. RANITIDINE [Concomitant]
     Active Substance: RANITIDINE
     Indication: Product used for unknown indication
     Dosage: 50 MG, QD
     Route: 042
     Dates: start: 20161110, end: 20161110
  36. RANITIDINE [Concomitant]
     Active Substance: RANITIDINE
     Dosage: 50 MG, QD
     Route: 042
     Dates: start: 20161118, end: 20161118
  37. RANITIDINE [Concomitant]
     Active Substance: RANITIDINE
     Dosage: 50 MG, QD
     Route: 042
     Dates: start: 20161208, end: 20161208
  38. RANITIDINE [Concomitant]
     Active Substance: RANITIDINE
     Dosage: 50 MG, QD
     Route: 042
     Dates: start: 20161229, end: 20161229
  39. RANITIDINE [Concomitant]
     Active Substance: RANITIDINE
     Dosage: 150 MG, QD
     Route: 048
     Dates: start: 20161111, end: 20161113
  40. RANITIDINE [Concomitant]
     Active Substance: RANITIDINE
     Dosage: 150 MG, QD
     Route: 048
     Dates: start: 20161209, end: 20161211
  41. RANITIDINE [Concomitant]
     Active Substance: RANITIDINE
     Dosage: 150 MG, QD
     Route: 048
     Dates: start: 20161230, end: 20170101
  42. ZOLPIDEM [Concomitant]
     Active Substance: ZOLPIDEM TARTRATE
     Indication: Product used for unknown indication
     Dosage: 6.25 MG, QD
     Route: 065
     Dates: start: 20161110, end: 20161110
  43. GRANISETRON [Concomitant]
     Active Substance: GRANISETRON
     Indication: Product used for unknown indication
     Dosage: 1 DOSAGE FORM, QD
     Route: 065
     Dates: start: 20161109, end: 20161115
  44. GRANISETRON [Concomitant]
     Active Substance: GRANISETRON
     Dosage: 1 DOSAGE FORM, QD
     Route: 065
     Dates: start: 20161207, end: 20161213
  45. GRANISETRON [Concomitant]
     Active Substance: GRANISETRON
     Dosage: 1 DOSAGE FORM, QD
     Route: 065
     Dates: start: 20161228, end: 20170103

REACTIONS (10)
  - Gastroenteritis [Recovered/Resolved]
  - Hyperkalaemia [Recovered/Resolved]
  - Diarrhoea [Recovered/Resolved]
  - Insomnia [Recovered/Resolved]
  - Diarrhoea [Recovered/Resolved]
  - Nasopharyngitis [Recovered/Resolved]
  - Neutropenia [Recovered/Resolved]
  - Neutropenia [Recovered/Resolved]
  - Neutropenia [Recovered/Resolved]
  - Diarrhoea [Recovered/Resolved]

NARRATIVE: CASE EVENT DATE: 20161110
